FAERS Safety Report 10771528 (Version 1)
Quarter: 2015Q1

REPORT INFORMATION
  Report Type: Spontaneous
  Country: TR (occurrence: TR)
  Receive Date: 20150206
  Receipt Date: 20150206
  Transmission Date: 20150721
  Serious: Yes (Other)
  Sender: FDA-Public Use
  Company Number: TR-ACTAVIS-2015-01161

PATIENT
  Age: 34 Year
  Sex: Female

DRUGS (1)
  1. PROPYLTHIOURACIL (UNKNOWN) [Suspect]
     Active Substance: PROPYLTHIOURACIL
     Indication: BASEDOW^S DISEASE
     Dosage: UNKNOWN
     Route: 065

REACTIONS (1)
  - Hypersensitivity vasculitis [Recovering/Resolving]
